FAERS Safety Report 11785758 (Version 1)
Quarter: 2015Q4

REPORT INFORMATION
  Report Type: Spontaneous
  Country: AT (occurrence: AT)
  Receive Date: 20151130
  Receipt Date: 20151130
  Transmission Date: 20160305
  Serious: Yes (Life-Threatening, Hospitalization)
  Sender: FDA-Public Use
  Company Number: AT-TEVA-611842ISR

PATIENT
  Age: 60 Year
  Sex: Male

DRUGS (24)
  1. RISPERDAL [Suspect]
     Active Substance: RISPERIDONE
     Dosage: .5 DOSAGE FORMS DAILY; 1-0-1-0
     Dates: start: 20150127
  2. EFECTIN ER 150MG [Suspect]
     Active Substance: VENLAFAXINE HYDROCHLORIDE
     Dosage: 1 DOSAGE FORMS DAILY; 1-0-0-0
     Dates: start: 20150127
  3. SORTIS [Concomitant]
     Active Substance: ATORVASTATIN
     Dosage: 40 MILLIGRAM DAILY; 0-0-1-0
     Dates: start: 20141205
  4. SIRDALUD [Concomitant]
     Active Substance: TIZANIDINE
     Indication: SPINAL PAIN
     Dosage: 2 MILLIGRAM DAILY; 1 DAILY FOR PAIN IN CERVICAL SPINE
     Dates: start: 20150403
  5. THERMORHEUMON [Concomitant]
     Dosage: 2 DOSAGE FORMS DAILY; 1-0-1-0
     Dates: start: 20151022
  6. SAROTEN 25 MG [Suspect]
     Active Substance: AMITRIPTYLINE HYDROCHLORIDE
     Dosage: 2 DOSAGE FORMS DAILY; 0-0-0-2
     Dates: start: 20141204
  7. PANTOPRAZOL GENERICON [Concomitant]
     Dosage: 20 MILLIGRAM DAILY; 1-0-0-0
     Dates: start: 20141205
  8. NOAX UNO RET 100MG [Concomitant]
     Dosage: 2 DOSAGE FORMS DAILY; 1-0-1-0
     Dates: start: 20151029
  9. TEMESTA 1MG [Suspect]
     Active Substance: LORAZEPAM
     Dosage: 2 DOSAGE FORMS DAILY; 0-0-0-2
     Dates: start: 20151010
  10. MOVICOL [Concomitant]
     Active Substance: POLYETHYLENE GLYCOL 3350\POTASSIUM CHLORIDE\SODIUM BICARBONATE\SODIUM CHLORIDE
     Dosage: 1 DOSAGE FORMS DAILY; 1-0-0-0
     Dates: start: 20140822
  11. SEROQUEL [Suspect]
     Active Substance: QUETIAPINE FUMARATE
     Dosage: 2 DOSAGE FORMS DAILY; 0-0-2-0
     Dates: start: 20141211
  12. DAKTARIN 2% CREME [Concomitant]
     Dosage: 3 TIMES DAILY IN BUCCAL CAVITY
     Dates: start: 20141002
  13. LISINOPRIL + HYDROCHLOROTHIAZIDE 20/25 [Concomitant]
     Dosage: .5 DOSAGE FORMS DAILY; 0.5-0-0-0
     Dates: start: 20141205
  14. TAMSULOSIN + PHARMA RET-KPS [Concomitant]
     Dosage: .4 MILLIGRAM DAILY; 0-0-1-0
     Dates: start: 20150429
  15. THROMBO ASS [Concomitant]
     Active Substance: ASPIRIN
     Dosage: 100 MILLIGRAM DAILY; 0-1-0-0
     Dates: start: 20140822
  16. AMLODIPINE [Concomitant]
     Active Substance: AMLODIPINE BESYLATE
     Dosage: 5 MILLIGRAM DAILY; 1-0-0-0
     Dates: start: 20141211
  17. NITROLINGUAL [Concomitant]
     Active Substance: NITROGLYCERIN
     Dosage: 2HB. RR}170, 3HB}190
     Dates: start: 20141121
  18. ZYPREXA [Suspect]
     Active Substance: OLANZAPINE
     Indication: TENSION
     Dosage: 1 DOSAGE FORMS DAILY;
     Dates: start: 20150403
  19. NOVALGIN [Concomitant]
     Active Substance: METAMIZOLE SODIUM
     Indication: PAIN
     Dosage: 3 DAILY 30 DROPS
     Dates: start: 20141204
  20. SPASMOLYT 30MG [Concomitant]
     Dosage: 2 DOSAGE FORMS DAILY; 1-0-1-0
     Dates: start: 20151029
  21. MIRTABENE 15MG [Suspect]
     Active Substance: MIRTAZAPINE
     Dosage: 2 DOSAGE FORMS DAILY; 0-0-2-0
     Dates: start: 20150127
  22. ZYPREXA [Suspect]
     Active Substance: OLANZAPINE
     Indication: RESTLESSNESS
     Dosage: 1 DOSAGE FORMS DAILY; 1 DAILY FOR TENSION AND RESTLESSNESS
     Dates: start: 20150403
  23. CANDIO HERMAL SOFT PASTE [Concomitant]
     Dosage: 2X1 CORNER OF THE MOUTH
     Dates: start: 20141002
  24. MEXALEN 500MG [Concomitant]
     Indication: BACK PAIN
     Dates: start: 20151028

REACTIONS (6)
  - Aphasia [None]
  - Cold sweat [Not Recovered/Not Resolved]
  - Electrolyte imbalance [Not Recovered/Not Resolved]
  - Blood sodium decreased [None]
  - Unresponsive to stimuli [None]
  - Epilepsy [Not Recovered/Not Resolved]

NARRATIVE: CASE EVENT DATE: 20151029
